FAERS Safety Report 6816710-2 (Version None)
Quarter: 2010Q3

REPORT INFORMATION
  Report Type: 
  Country: None (occurrence: None)
  Receive Date: 20100706
  Receipt Date: 20100701
  Transmission Date: 20110219
  Serious: Yes (Death)
  Sender: FDA-Public Use
  Company Number: JP-JNJFOC-20100603302

PATIENT

DRUGS (1)
  1. DUROTEP MT PATCH [Suspect]
     Indication: CANCER PAIN
     Route: 062

REACTIONS (2)
  - RENAL CANCER [None]
  - URINE OUTPUT DECREASED [None]
